FAERS Safety Report 6901058-8 (Version None)
Quarter: 2010Q3

REPORT INFORMATION
  Report Type: 
  Country: None (occurrence: None)
  Receive Date: 20100803
  Receipt Date: 20100723
  Transmission Date: 20110219
  Serious: Yes (Other)
  Sender: FDA-Public Use
  Company Number: US-BAXTER-2010BH019788

PATIENT
  Age: 20 Year
  Sex: Female

DRUGS (1)
  1. IMMUNE GLOBULIN INTRAVENOUS (HUMAN) [Suspect]
     Indication: MYASTHENIA GRAVIS
     Route: 042

REACTIONS (1)
  - TRANSVERSE SINUS THROMBOSIS [None]
